FAERS Safety Report 8888382 (Version 1)
Quarter: 2012Q4

REPORT INFORMATION
  Report Type: 
  Country: NL (occurrence: NL)
  Receive Date: 20121106
  Receipt Date: 20121106
  Transmission Date: 20130627
  Serious: Yes (Hospitalization, Other)
  Sender: FDA-Public Use
  Company Number: PHHY2012NL100552

PATIENT
  Sex: Male
  Weight: 76 kg

DRUGS (6)
  1. DICLOFENAC [Suspect]
     Indication: GALLBLADDER PAIN
     Dosage: 75 mg, UNK
     Route: 030
     Dates: start: 20121020, end: 20121020
  2. HYDROCHLOROTHIAZIDE [Interacting]
     Indication: COLON CANCER
     Dosage: 12.5 mg, per day
     Route: 048
     Dates: start: 2010
  3. CAPECITABINE [Interacting]
     Indication: COLON CANCER
     Dosage: 2000 mg, (2 dd)
     Dates: start: 20121016
  4. OXALIPLATIN [Interacting]
     Indication: COLON CANCER
     Dosage: 250 mg, (1dd)
     Route: 042
     Dates: start: 20121016
  5. THYRAX DUOTAB [Concomitant]
     Dosage: 2 DF, per day
     Dates: start: 1952
  6. SIMVASTATIN [Concomitant]
     Dosage: 40 mg, per day (1 dd)
     Dates: start: 2010

REACTIONS (2)
  - Renal failure acute [Recovering/Resolving]
  - Drug interaction [Unknown]
